FAERS Safety Report 4478620-8 (Version None)
Quarter: 2004Q4

REPORT INFORMATION
  Report Type: 
  Country: None (occurrence: None)
  Receive Date: 20041019
  Receipt Date: 20041013
  Transmission Date: 20050328
  Serious: Yes (Hospitalization)
  Sender: FDA-Public Use
  Company Number: 200420151GDDC

PATIENT
  Age: 80 Year
  Sex: Female

DRUGS (2)
  1. MINIRIN [Suspect]
     Indication: NOCTURIA
     Route: 045
     Dates: start: 20040927
  2. UNKNOWN DRUG [Concomitant]

REACTIONS (5)
  - DIZZINESS [None]
  - DRUG INEFFECTIVE [None]
  - FALL [None]
  - LIMB INJURY [None]
  - NAUSEA [None]
